FAERS Safety Report 7068161-6 (Version None)
Quarter: 2010Q4

REPORT INFORMATION
  Report Type: 
  Country: None (occurrence: None)
  Receive Date: 20101028
  Receipt Date: 20101015
  Transmission Date: 20110411
  Serious: Yes (Life-Threatening, Hospitalization)
  Sender: FDA-Public Use
  Company Number: DE-ROCHE-626207

PATIENT
  Age: 68 Year
  Sex: Female
  Weight: 102 kg

DRUGS (12)
  1. TORASEMIDE [Suspect]
     Route: 048
     Dates: start: 20041101, end: 20080508
  2. TORASEMIDE [Suspect]
     Route: 048
     Dates: start: 20080513
  3. RAMICARD [Suspect]
     Dosage: THERAPY DURATION: 3 YEARS
     Route: 048
     Dates: start: 20041101, end: 20080508
  4. SPIRONOLACTONE [Suspect]
     Route: 048
     Dates: start: 20070101, end: 20080508
  5. XIPAMID [Suspect]
     Route: 048
     Dates: start: 20070101, end: 20080508
  6. ACETYLSALICYLIC ACID [Suspect]
     Route: 065
     Dates: start: 20040101, end: 20080507
  7. BISOPROLOL FUMARATE [Suspect]
     Route: 048
     Dates: start: 20041101, end: 20080407
  8. DOLORMIN [Suspect]
     Dosage: FREQUENCY: IF REQUIRED.
     Route: 048
  9. ACTRAPID HM [Concomitant]
     Dosage: 26IU AT AM-22IU AT NOON-26IU AT PM. 24 IU
     Route: 058
     Dates: start: 20050101
  10. PLAVIX [Concomitant]
     Route: 048
     Dates: start: 20081101
  11. PRAVASTATIN [Concomitant]
     Route: 048
     Dates: start: 20040101
  12. PROTAPHAN [Concomitant]
     Route: 058
     Dates: start: 20050101

REACTIONS (1)
  - RENAL FAILURE ACUTE [None]
